FAERS Safety Report 11556114 (Version 1)
Quarter: 2015Q3

REPORT INFORMATION
  Report Type: Spontaneous
  Country: US (occurrence: US)
  Receive Date: 20150925
  Receipt Date: 20150925
  Transmission Date: 20151125
  Serious: No
  Sender: FDA-Public Use
  Company Number: US-WATSON-2014-28684

PATIENT
  Age: 55 Year
  Sex: Male

DRUGS (2)
  1. CARAFATE [Suspect]
     Active Substance: SUCRALFATE
     Indication: GASTRIC DISORDER
     Dosage: 3 G, 3-4 TIMES DAILY
     Route: 048
     Dates: start: 2014, end: 201409
  2. ENALAPRIL [Concomitant]
     Active Substance: ENALAPRIL
     Indication: HYPERTENSION
     Dosage: UNK
     Route: 065

REACTIONS (3)
  - Off label use [Recovered/Resolved]
  - Hyperhidrosis [Recovered/Resolved]
  - Overdose [Recovered/Resolved]

NARRATIVE: CASE EVENT DATE: 2014
